FAERS Safety Report 11822600 (Version 1)
Quarter: 2015Q4

REPORT INFORMATION
  Report Type: Spontaneous
  Country: US (occurrence: US)
  Receive Date: 20151210
  Receipt Date: 20151210
  Transmission Date: 20160305
  Serious: No
  Sender: FDA-Public Use
  Company Number: US-JNJFOC-20150602622

PATIENT
  Age: 88 Year
  Sex: Female

DRUGS (2)
  1. IMBRUVICA [Suspect]
     Active Substance: IBRUTINIB
     Indication: WALDENSTROM^S MACROGLOBULINAEMIA
     Dosage: 140 MG ALTERNATING 280 MG EVERY OTHER DAY
     Route: 048
     Dates: start: 20150501, end: 201505
  2. IMBRUVICA [Suspect]
     Active Substance: IBRUTINIB
     Indication: WALDENSTROM^S MACROGLOBULINAEMIA
     Route: 048
     Dates: start: 201505

REACTIONS (6)
  - Incorrect dose administered [Not Recovered/Not Resolved]
  - Skin lesion [Recovered/Resolved]
  - Fatigue [Not Recovered/Not Resolved]
  - Stomatitis [Recovered/Resolved]
  - Pain in extremity [Not Recovered/Not Resolved]
  - Pain [Not Recovered/Not Resolved]

NARRATIVE: CASE EVENT DATE: 20150501
